FAERS Safety Report 25337752 (Version 3)
Quarter: 2025Q3

REPORT INFORMATION
  Report Type: Report from Study
  Country: CA (occurrence: CA)
  Receive Date: 20250520
  Receipt Date: 20250918
  Transmission Date: 20251021
  Serious: Yes (Other)
  Sender: TAKEDA
  Company Number: CA-TAKEDA-2023TUS117237

PATIENT
  Sex: Female
  Weight: 102 kg

DRUGS (17)
  1. VEDOLIZUMAB [Suspect]
     Active Substance: VEDOLIZUMAB
     Indication: Crohn^s disease
  2. VEDOLIZUMAB [Suspect]
     Active Substance: VEDOLIZUMAB
  3. VEDOLIZUMAB [Suspect]
     Active Substance: VEDOLIZUMAB
  4. VEDOLIZUMAB [Suspect]
     Active Substance: VEDOLIZUMAB
  5. VEDOLIZUMAB [Suspect]
     Active Substance: VEDOLIZUMAB
     Dosage: 300 MILLIGRAM, Q4WEEKS
     Dates: start: 20250527
  6. VEDOLIZUMAB [Suspect]
     Active Substance: VEDOLIZUMAB
     Dosage: 300 MILLIGRAM, Q4WEEKS
  7. PREDNISONE [Concomitant]
     Active Substance: PREDNISONE
  8. OXYGEN [Concomitant]
     Active Substance: OXYGEN
  9. ASPIRIN [Concomitant]
     Active Substance: ASPIRIN
  10. LEVOTHYROXINE SODIUM [Concomitant]
     Active Substance: LEVOTHYROXINE SODIUM
  11. CLOTRIMAZOLE [Concomitant]
     Active Substance: CLOTRIMAZOLE
  12. FLUCONAZOLE [Concomitant]
     Active Substance: FLUCONAZOLE
  13. TIOTROPIUM BROMIDE [Concomitant]
     Active Substance: TIOTROPIUM BROMIDE
  14. FUCIDIN [Concomitant]
     Active Substance: FUSIDATE SODIUM
  15. CEPHALEXIN [Concomitant]
     Active Substance: CEPHALEXIN
  16. ROSUVASTATIN [Concomitant]
     Active Substance: ROSUVASTATIN
  17. BREO ELLIPTA [Concomitant]
     Active Substance: FLUTICASONE FUROATE\VILANTEROL TRIFENATATE

REACTIONS (5)
  - Anastomotic ulcer [Unknown]
  - Colorectal adenoma [Unknown]
  - Diarrhoea [Unknown]
  - Frequent bowel movements [Unknown]
  - Anorectal polyp [Unknown]
